FAERS Safety Report 10082510 (Version 1)
Quarter: 2014Q2

REPORT INFORMATION
  Report Type: Spontaneous
  Country: GB (occurrence: None)
  Receive Date: 20140407
  Receipt Date: 20140407
  Transmission Date: 20141212
  Serious: Yes (Death)
  Sender: FDA-Public Use
  Company Number: 250654

PATIENT
  Age: 66 Year
  Sex: Female

DRUGS (10)
  1. OXALIPLATIN [Suspect]
     Indication: COLORECTAL CANCER METASTATIC
     Route: 042
     Dates: start: 20090119
  2. BEVACIZUMAB [Suspect]
     Indication: METASTASIS
  3. CAPECITABINE [Suspect]
     Indication: COLORECTAL CANCER METASTATIC
     Route: 048
     Dates: start: 20090119, end: 20090221
  4. FILGRASTIM [Concomitant]
  5. HYOSCIN N-BUTYLBROMIDE [Concomitant]
  6. CEFUROXIME [Concomitant]
  7. CIPROFLOXACIN [Concomitant]
  8. HALOPERIDOL [Concomitant]
  9. MORPHINE [Concomitant]
  10. OCTREOTIDE [Concomitant]

REACTIONS (4)
  - Colitis [None]
  - Colitis ischaemic [None]
  - Migraine [None]
  - Diarrhoea [None]
